FAERS Safety Report 7183514-3 (Version None)
Quarter: 2010Q4

REPORT INFORMATION
  Report Type: 
  Country: None (occurrence: None)
  Receive Date: 20101222
  Receipt Date: 20101210
  Transmission Date: 20110411
  Serious: Yes (Hospitalization, Other)
  Sender: FDA-Public Use
  Company Number: PHFR2010GB03988

PATIENT
  Sex: Female

DRUGS (1)
  1. CLOZARIL [Suspect]
     Indication: SCHIZOPHRENIA
     Dosage: UNK
     Route: 048
     Dates: start: 20090910

REACTIONS (5)
  - ACUTE MYOCARDIAL INFARCTION [None]
  - MENTAL DISORDER [None]
  - OBESITY [None]
  - SEPSIS [None]
  - VOMITING [None]
